FAERS Safety Report 16786466 (Version 10)
Quarter: 2022Q1

REPORT INFORMATION
  Report Type: Spontaneous
  Country: US (occurrence: US)
  Receive Date: 20190909
  Receipt Date: 20220131
  Transmission Date: 20220423
  Serious: Yes (Hospitalization, Other)
  Sender: FDA-Public Use
  Company Number: US-PFIZER INC-2018515265

PATIENT
  Age: 68 Year
  Sex: Male
  Weight: 104 kg

DRUGS (24)
  1. LYRICA [Suspect]
     Active Substance: PREGABALIN
     Indication: Diabetic neuropathy
     Dosage: 50 MG, 3X/DAY (MORNING NOON AND NIGHT )
     Route: 048
     Dates: start: 20150101, end: 202012
  2. ALLOPURINOL [Concomitant]
     Active Substance: ALLOPURINOL
     Indication: Gout
     Dosage: 100 MG, 1X/DAY
     Dates: start: 2018
  3. ALLOPURINOL [Concomitant]
     Active Substance: ALLOPURINOL
     Dosage: 100 MG, 1X/DAY
     Dates: start: 20190101
  4. AMITRIPTYLINE [Concomitant]
     Active Substance: AMITRIPTYLINE
     Indication: Migraine
     Dosage: 50 MG, 1X/DAY (50 MG ONE AT BEDTIME)
  5. AMITRIPTYLINE [Concomitant]
     Active Substance: AMITRIPTYLINE
     Indication: Neuropathy peripheral
     Dosage: 50 MG, (50MG 1OR 2 AT BEDTIME)
     Dates: start: 20180101
  6. TAMSULOSIN [Concomitant]
     Active Substance: TAMSULOSIN
     Indication: Prostate infection
     Dosage: 0.4 MG, 1X/DAY
     Dates: start: 20180101
  7. FOLIC ACID [Concomitant]
     Active Substance: FOLIC ACID
     Dosage: 1 MG, 1X/DAY
     Dates: start: 20180101
  8. CHLORTHALIDONE [Concomitant]
     Active Substance: CHLORTHALIDONE
     Dosage: 25 MG, 1X/DAY
     Dates: start: 20180101
  9. BAYER ASPIRIN [Concomitant]
     Active Substance: ASPIRIN
     Indication: Migraine
     Dosage: 81 MG, 1X/DAY (81 MG ONE IN MORNING)
     Dates: start: 20160101
  10. BAYER ASPIRIN [Concomitant]
     Active Substance: ASPIRIN
     Indication: Neuropathy peripheral
  11. CARVEDILOL [Concomitant]
     Active Substance: CARVEDILOL
     Dosage: 6.5 MG, 2X/DAY (6.5 MG BY MOUTH TWICE A DAY)
     Route: 048
     Dates: start: 20160101
  12. FINASTERIDE [Concomitant]
     Active Substance: FINASTERIDE
     Indication: Polyuria
     Dosage: 5 MG, 1X/DAY
     Dates: start: 20160101
  13. FUROSEMIDE [Concomitant]
     Active Substance: FUROSEMIDE
     Indication: Polyuria
     Dosage: 40 MG, 2X/DAY
     Dates: start: 20170101
  14. GLIMEPIRIDE [Concomitant]
     Active Substance: GLIMEPIRIDE
     Indication: Diabetes mellitus
     Dosage: 4 MG, 2X/DAY
     Dates: start: 20160101
  15. LEVOTHYROXINE [Concomitant]
     Active Substance: LEVOTHYROXINE
     Indication: Thyroid disorder
     Dosage: 25 MG, 1X/DAY (IN MORNING BEFORE EATING)
     Route: 048
     Dates: start: 20190101
  16. NOVOLIN NOS [Concomitant]
     Active Substance: INSULIN HUMAN
     Indication: Diabetes mellitus
     Dosage: UNK, 1X/DAY (SLIDING SCALE ON SUGAR COUNT IN MORNING) (70/30 INSULIN)
     Route: 058
     Dates: start: 20160101
  17. PRAVASTATIN [Concomitant]
     Active Substance: PRAVASTATIN
     Dosage: 40 MG, 1X/DAY
     Route: 048
     Dates: start: 20160101
  18. VALSARTAN [Concomitant]
     Active Substance: VALSARTAN
     Dosage: 80 MG, 2X/DAY (BREAK IN HALF IN MORNING AND HALF IN EVENING)
     Dates: start: 20160101
  19. LANTUS [Concomitant]
     Active Substance: INSULIN GLARGINE
     Indication: Diabetes mellitus
     Dosage: UNK, 1X/DAY (SLIDING SCALE AT BEDTIME)
     Route: 058
     Dates: start: 20150101
  20. FLOMAX [Concomitant]
     Active Substance: TAMSULOSIN HYDROCHLORIDE
     Dosage: 0.4 MG, 1X/DAY
     Dates: start: 20170101
  21. AMLODIPINE BESYLATE [Concomitant]
     Active Substance: AMLODIPINE BESYLATE
     Dosage: 5 MG, 1X/DAY
  22. BACLOFEN [Concomitant]
     Active Substance: BACLOFEN
     Dosage: 10 MG, 1X/DAY (1 AT BEDTIME)
  23. MAGNESIUM [Concomitant]
     Active Substance: MAGNESIUM
     Dosage: 400 MG, 1X/DAY
  24. PREDNISOLONE ACETATE [Concomitant]
     Active Substance: PREDNISOLONE ACETATE
     Dosage: UNK
     Route: 047

REACTIONS (9)
  - Gangrene [Recovered/Resolved]
  - Procedural pain [Recovered/Resolved]
  - Dialysis [Unknown]
  - Drug ineffective [Unknown]
  - Expired product administered [Unknown]
  - Pain in extremity [Unknown]
  - Eye ulcer [Unknown]
  - Insomnia [Unknown]
  - Restless legs syndrome [Unknown]

NARRATIVE: CASE EVENT DATE: 20190524
